FAERS Safety Report 6143671-4 (Version None)
Quarter: 2009Q2

REPORT INFORMATION
  Report Type: 
  Country: None (occurrence: None)
  Receive Date: 20090403
  Receipt Date: 20090324
  Transmission Date: 20091009
  Serious: Yes (Other)
  Sender: FDA-Public Use
  Company Number: US-JNJCH-2009008269

PATIENT
  Age: 21 Year
  Sex: Male
  Weight: 111.1 kg

DRUGS (1)
  1. SUDAFED 12 HOUR [Suspect]
     Indication: HYPERSENSITIVITY
     Dosage: TEXT:1 TABLET EVERY 12 HOURS FOR 5 DAYS
     Route: 048
     Dates: start: 20090315, end: 20090319

REACTIONS (2)
  - DIARRHOEA HAEMORRHAGIC [None]
  - LIBIDO DECREASED [None]
